FAERS Safety Report 10753722 (Version 1)
Quarter: 2015Q1

REPORT INFORMATION
  Report Type: Spontaneous
  Country: US (occurrence: US)
  Receive Date: 20150201
  Receipt Date: 20150201
  Transmission Date: 20150721
  Serious: No
  Sender: FDA-Public Use
  Company Number: US-TEVA-536083USA

PATIENT
  Age: 69 Year
  Sex: Male
  Weight: 90.8 kg

DRUGS (15)
  1. COREG [Concomitant]
     Active Substance: CARVEDILOL
  2. CHONDROITIN SULFATE (BOVINE)\GLUCOSAMINE SULFATE [Concomitant]
     Active Substance: CHONDROITIN SULFATE (BOVINE)\GLUCOSAMINE SULFATE
  3. ZETIA [Concomitant]
     Active Substance: EZETIMIBE
  4. NORVASC [Concomitant]
     Active Substance: AMLODIPINE BESYLATE
  5. PREVACID [Concomitant]
     Active Substance: LANSOPRAZOLE
  6. VITAMIN C [Concomitant]
     Active Substance: ASCORBIC ACID
  7. VITAMIN B12 [Concomitant]
     Active Substance: CYANOCOBALAMIN
  8. ASPIRIN. [Concomitant]
     Active Substance: ASPIRIN
  9. MOBIC [Concomitant]
     Active Substance: MELOXICAM
  10. VITAMIN D3 [Concomitant]
     Active Substance: CHOLECALCIFEROL
  11. AZILECT [Suspect]
     Active Substance: RASAGILINE MESYLATE
     Indication: PARKINSON^S DISEASE
     Route: 048
     Dates: start: 20141023
  12. CLARITIN [Concomitant]
     Active Substance: LORATADINE
  13. CRESTOR [Concomitant]
     Active Substance: ROSUVASTATIN CALCIUM
  14. BACLOFEN. [Concomitant]
     Active Substance: BACLOFEN
  15. PROBIOTICA [Concomitant]
     Active Substance: PROBIOTICS NOS

REACTIONS (5)
  - Vitamin B12 decreased [Unknown]
  - Laceration [Unknown]
  - Vitamin D decreased [Unknown]
  - Fall [Unknown]
  - Limb injury [Unknown]

NARRATIVE: CASE EVENT DATE: 20141101
